FAERS Safety Report 13353717 (Version 2)
Quarter: 2017Q3

REPORT INFORMATION
  Report Type: Spontaneous
  Country: US (occurrence: US)
  Receive Date: 20170321
  Receipt Date: 20170720
  Transmission Date: 20171127
  Serious: No
  Sender: FDA-Public Use
  Company Number: US-ASTRAZENECA-2017SE27647

PATIENT
  Sex: Male

DRUGS (1)
  1. PULMICORT FLEXHALER [Suspect]
     Active Substance: BUDESONIDE
     Dosage: 180.0UG UNKNOWN
     Route: 055
     Dates: start: 20170310

REACTIONS (7)
  - Device malfunction [Unknown]
  - Eye injury [Unknown]
  - Eye haemorrhage [Unknown]
  - Cough [Not Recovered/Not Resolved]
  - Intentional product misuse [Unknown]
  - Drug dispensing error [Unknown]
  - Influenza [Unknown]
